FAERS Safety Report 5887644-5 (Version None)
Quarter: 2008Q3

REPORT INFORMATION
  Report Type: 
  Country: None (occurrence: None)
  Receive Date: 20080918
  Receipt Date: 20080909
  Transmission Date: 20090109
  Serious: Yes (Other)
  Sender: FDA-Public Use
  Company Number: US-BAYER-200833141NA

PATIENT

DRUGS (2)
  1. SORAFENIB [Suspect]
     Indication: DRUG USE FOR UNKNOWN INDICATION
     Route: 048
  2. GEMCITABINE HCL [Concomitant]

REACTIONS (2)
  - CATATONIA [None]
  - MUSCLE CONTRACTIONS INVOLUNTARY [None]
